FAERS Safety Report 7694504-6 (Version None)
Quarter: 2011Q3

REPORT INFORMATION
  Report Type: 
  Country: None (occurrence: None)
  Receive Date: 20110819
  Receipt Date: 20110808
  Transmission Date: 20111222
  Serious: Yes (Hospitalization, Disabling)
  Sender: FDA-Public Use
  Company Number: PHHY2011FR32628

PATIENT
  Sex: Female

DRUGS (18)
  1. LASIX [Concomitant]
     Dosage: 40 MG, BID
  2. PROGESTERONE [Concomitant]
     Dosage: 1 DF, UNK
     Route: 048
  3. FOSRENOL [Concomitant]
     Dosage: 500 MG, UNK
  4. PLAVIX [Concomitant]
     Dosage: 75 MG, UNK
  5. ALLOPURINOL [Concomitant]
     Dosage: 200 MG, UNK
  6. PREDNISONE [Concomitant]
     Dosage: 3 MG, UNK
     Dates: start: 20100101
  7. CELECTOL [Concomitant]
     Dosage: 200 MG, QD
  8. ATORVASTATIN CALCIUM [Concomitant]
     Dosage: 10 MG, UNK
  9. CALCIUM CARBONATE [Concomitant]
     Dosage: UNK UKN, UNK
  10. RED BLOOD CELLS [Concomitant]
     Dosage: UNK UKN, UNK
  11. ACETAMINOPHEN [Concomitant]
     Dosage: UNK UKN, UNK
  12. XANAX [Concomitant]
     Dosage: 0.5 MG, TID
  13. NEORAL [Suspect]
     Indication: LIVER TRANSPLANT
     Dosage: 45 MG, BID
     Route: 048
  14. EPOGEN [Concomitant]
     Dosage: UNK UKN, UNK
  15. SODIUM BICARBONATE [Concomitant]
     Dosage: UNK UKN, UNK
  16. PHOSPHATE CHELATOR [Concomitant]
     Dosage: UNK UKN, UNK
  17. MEPRONIZINE [Concomitant]
     Dosage: UNK UKN, BID
  18. MIRCERA [Concomitant]
     Dosage: 50 MCG MONTHLY

REACTIONS (7)
  - DYSPNOEA EXERTIONAL [None]
  - BLOOD CREATININE INCREASED [None]
  - RENAL ARTERY STENOSIS [None]
  - NORMOCHROMIC NORMOCYTIC ANAEMIA [None]
  - ASTHENIA [None]
  - RENAL FAILURE [None]
  - THROMBOCYTOPENIA [None]
